FAERS Safety Report 6906232-2 (Version None)
Quarter: 2010Q3

REPORT INFORMATION
  Report Type: 
  Country: None (occurrence: None)
  Receive Date: 20100803
  Receipt Date: 20100803
  Transmission Date: 20110219
  Serious: Yes (Hospitalization)
  Sender: FDA-Public Use
  Company Number: None

PATIENT
  Sex: Male
  Weight: 103 kg

DRUGS (1)
  1. CISPLATIN [Suspect]
     Dosage: 668 MG
     Dates: end: 20100618

REACTIONS (1)
  - CELLULITIS [None]
